FAERS Safety Report 7904235 (Version 3)
Quarter: 2013Q3

REPORT INFORMATION
  Report Type: Spontaneous
  Country: US (occurrence: US)
  Receive Date: 20110419
  Receipt Date: 20130820
  Transmission Date: 20140515
  Serious: Yes (Hospitalization)
  Sender: FDA-Public Use
  Company Number: US-BAYER-2011-018066

PATIENT
  Age: 63 Year
  Sex: Male
  Weight: 50 kg

DRUGS (1)
  1. NEXAVAR [Suspect]
     Indication: HEPATOCELLULAR CARCINOMA
     Dosage: 200 MG, QID
     Route: 048
     Dates: start: 20080507, end: 20080518

REACTIONS (4)
  - Hepatic encephalopathy [Unknown]
  - Dehydration [Unknown]
  - Anxiety [Unknown]
  - Hiccups [None]
